FAERS Safety Report 7389771-2 (Version None)
Quarter: 2011Q1

REPORT INFORMATION
  Report Type: 
  Country: None (occurrence: None)
  Receive Date: 20110324
  Receipt Date: 20110315
  Transmission Date: 20110831
  Serious: Yes (Hospitalization)
  Sender: FDA-Public Use
  Company Number: 863498

PATIENT
  Age: 54 Year
  Sex: Female

DRUGS (6)
  1. (METHOTREXATE) [Suspect]
     Indication: DIFFUSE LARGE B-CELL LYMPHOMA
     Dosage: INTRATHECAL
     Route: 037
  2. CISPLATIN [Concomitant]
  3. CYTARABINE [Concomitant]
  4. (RIUXIMAB) [Concomitant]
  5. (METHYLPREDNISOLONE) [Concomitant]
  6. ETOPOSIDE [Concomitant]

REACTIONS (4)
  - GENERAL PHYSICAL HEALTH DETERIORATION [None]
  - TUMOUR LYSIS SYNDROME [None]
  - BRAIN OEDEMA [None]
  - GRAND MAL CONVULSION [None]
